FAERS Safety Report 5729339-4 (Version None)
Quarter: 2008Q2

REPORT INFORMATION
  Report Type: 
  Country: None (occurrence: None)
  Receive Date: 20080506
  Receipt Date: 20080424
  Transmission Date: 20081010
  Serious: Yes (Hospitalization)
  Sender: FDA-Public Use
  Company Number: FR-PFIZER INC-2008036949

PATIENT
  Sex: Female

DRUGS (10)
  1. NEURONTIN [Suspect]
     Indication: POST HERPETIC NEURALGIA
     Route: 048
  2. ORENCIA [Suspect]
     Route: 042
     Dates: start: 20070201, end: 20080131
  3. ARANESP [Concomitant]
  4. LEDERFOLIN [Concomitant]
  5. XYZAL [Concomitant]
  6. STILNOX [Concomitant]
  7. UVEDOSE [Concomitant]
  8. CORTANCYL [Concomitant]
  9. ZOLPIDEM [Concomitant]
  10. DIFFU K [Concomitant]

REACTIONS (2)
  - INFLAMMATION [None]
  - THYROIDITIS [None]
